FAERS Safety Report 17554864 (Version 1)
Quarter: 2020Q1

REPORT INFORMATION
  Report Type: Spontaneous
  Country: US (occurrence: US)
  Receive Date: 20200318
  Receipt Date: 20200318
  Transmission Date: 20200409
  Serious: No
  Sender: FDA-Public Use
  Company Number: US-PFIZER INC-2019290300

PATIENT
  Age: 65 Year
  Sex: Male

DRUGS (2)
  1. INSPRA [Suspect]
     Active Substance: EPLERENONE
     Dosage: 50 MG, ONCE DAILY
     Route: 048
  2. INSPRA [Suspect]
     Active Substance: EPLERENONE
     Indication: HYPERTENSION
     Dosage: 200 MG, DAILY
     Route: 048

REACTIONS (2)
  - Prescribed overdose [Unknown]
  - Gynaecomastia [Unknown]
